FAERS Safety Report 6466384-8 (Version None)
Quarter: 2009Q4

REPORT INFORMATION
  Report Type: 
  Country: None (occurrence: None)
  Receive Date: 20091201
  Receipt Date: 20091201
  Transmission Date: 20100525
  Serious: Yes (Other)
  Sender: FDA-Public Use
  Company Number: None

PATIENT
  Age: 48 Year
  Sex: Male
  Weight: 192.3251 kg

DRUGS (1)
  1. SULFAMETHOXAZOLE [Suspect]
     Indication: UPPER RESPIRATORY TRACT INFECTION
     Dosage: 1 TABLET EVERY 12HRS PO
     Route: 048
     Dates: start: 20091124, end: 20091125

REACTIONS (4)
  - CHILLS [None]
  - DIZZINESS [None]
  - HEART RATE INCREASED [None]
  - VISION BLURRED [None]
